FAERS Safety Report 13591114 (Version 4)
Quarter: 2017Q2

REPORT INFORMATION
  Report Type: Spontaneous
  Country: IT (occurrence: IT)
  Receive Date: 20170530
  Receipt Date: 20170621
  Transmission Date: 20170830
  Serious: Yes (Hospitalization)
  Sender: FDA-Public Use
  Company Number: IT-SUN PHARMACEUTICAL INDUSTRIES LTD-2017RR-141649

PATIENT
  Age: 74 Year
  Sex: Male

DRUGS (5)
  1. LORAZEPAM. [Suspect]
     Active Substance: LORAZEPAM
     Indication: TOXICITY TO VARIOUS AGENTS
     Dosage: 19 MG TOTAL
     Route: 048
     Dates: start: 20170425, end: 20170425
  2. TARGIN 20 MG/10 MG [Interacting]
     Active Substance: NALOXONE HYDROCHLORIDE\OXYCODONE HYDROCHLORIDE
     Indication: TOXICITY TO VARIOUS AGENTS
     Dosage: 840 MG TOTAL
     Route: 048
     Dates: start: 20170425, end: 20170425
  3. RAMIPRIL. [Interacting]
     Active Substance: RAMIPRIL
     Indication: ACCIDENTAL POISONING
     Dosage: 17.5 MG TOTAL
     Route: 048
     Dates: start: 20170425, end: 20170425
  4. COUMADIN [Interacting]
     Active Substance: WARFARIN SODIUM
     Indication: TOXICITY TO VARIOUS AGENTS
     Dosage: TOTAL
     Route: 048
     Dates: start: 20170425, end: 20170425
  5. LAROXYL 40MG/ML [Interacting]
     Active Substance: AMITRIPTYLINE HYDROCHLORIDE
     Indication: TOXICITY TO VARIOUS AGENTS
     Dosage: 20 ML TOTAL
     Route: 048
     Dates: start: 20170425, end: 20170425

REACTIONS (4)
  - Drug interaction [Recovered/Resolved]
  - Sopor [Recovered/Resolved]
  - Intentional overdose [Recovered/Resolved]
  - Poisoning deliberate [Recovered/Resolved]

NARRATIVE: CASE EVENT DATE: 20170425
